FAERS Safety Report 5160897-7 (Version None)
Quarter: 2006Q4

REPORT INFORMATION
  Report Type: 
  Country: None (occurrence: None)
  Receive Date: 20061130
  Receipt Date: 20061120
  Transmission Date: 20070319
  Serious: Yes (Death, Other)
  Sender: FDA-Public Use
  Company Number: JP-JNJFOC-20061006849

PATIENT
  Age: 85 Year
  Sex: Male

DRUGS (1)
  1. DUROTEP [Suspect]
     Indication: CANCER PAIN
     Route: 062

REACTIONS (6)
  - CONDITION AGGRAVATED [None]
  - DEPRESSED LEVEL OF CONSCIOUSNESS [None]
  - DRUG EFFECT INCREASED [None]
  - LUNG NEOPLASM MALIGNANT [None]
  - SOMNOLENCE [None]
  - WRONG TECHNIQUE IN DRUG USAGE PROCESS [None]
